FAERS Safety Report 13418183 (Version 2)
Quarter: 2019Q1

REPORT INFORMATION
  Report Type: Spontaneous
  Country: US (occurrence: US)
  Receive Date: 20170406
  Receipt Date: 20190208
  Transmission Date: 20190417
  Serious: Yes (Other)
  Sender: FDA-Public Use
  Company Number: US-SA-2017SA059488

PATIENT
  Age: 66 Year
  Sex: Female

DRUGS (1)
  1. PRALUENT [Suspect]
     Active Substance: ALIROCUMAB
     Indication: HYPERLIPIDAEMIA
     Dosage: UNK UNK,QOW
     Route: 058
     Dates: start: 201801

REACTIONS (6)
  - Influenza [Unknown]
  - Cardiac disorder [Unknown]
  - Feeling abnormal [Unknown]
  - Asthenia [Unknown]
  - Nasopharyngitis [Unknown]
  - Dyspnoea [Unknown]
